FAERS Safety Report 11442027 (Version 1)
Quarter: 2015Q3

REPORT INFORMATION
  Report Type: Report from Study
  Country: US (occurrence: US)
  Receive Date: 20150901
  Receipt Date: 20150901
  Transmission Date: 20151125
  Serious: Yes (Hospitalization)
  Sender: FDA-Public Use
  Company Number: US-EISAI MEDICAL RESEARCH-EC-2015-009875

PATIENT
  Age: 58 Year
  Sex: Female
  Weight: 55.7 kg

DRUGS (9)
  1. CALCIUM+D [Concomitant]
  2. DEXAMETHASONE. [Concomitant]
     Active Substance: DEXAMETHASONE
  3. LENVIMA [Suspect]
     Active Substance: LENVATINIB
     Indication: THYROID CANCER
     Route: 048
     Dates: start: 20150807, end: 20150809
  4. IRON 100 PLUS [Concomitant]
  5. FLOMAX [Concomitant]
     Active Substance: TAMSULOSIN HYDROCHLORIDE
  6. ADVIL [Concomitant]
     Active Substance: IBUPROFEN
  7. LEVOTHYROXINE. [Concomitant]
     Active Substance: LEVOTHYROXINE
  8. PANTOPRAZOLE SODIUM. [Concomitant]
     Active Substance: PANTOPRAZOLE SODIUM
  9. CALCITRIOL. [Concomitant]
     Active Substance: CALCITRIOL

REACTIONS (3)
  - Cardiogenic shock [Recovered/Resolved]
  - Septic shock [Recovered/Resolved]
  - Posterior reversible encephalopathy syndrome [Recovered/Resolved]

NARRATIVE: CASE EVENT DATE: 201508
